FAERS Safety Report 23814854 (Version 4)
Quarter: 2024Q2

REPORT INFORMATION
  Report Type: Spontaneous
  Country: JP (occurrence: JP)
  Receive Date: 20240503
  Receipt Date: 20240618
  Transmission Date: 20240715
  Serious: No
  Sender: FDA-Public Use
  Company Number: JP-JNJFOC-20240430943

PATIENT
  Age: 5 Decade
  Sex: Female

DRUGS (1)
  1. SIMPONI [Suspect]
     Active Substance: GOLIMUMAB
     Indication: Rheumatoid arthritis
     Dosage: DOSE UNKNOWN
     Route: 058

REACTIONS (2)
  - Injection site pain [Unknown]
  - Device defective [Unknown]

NARRATIVE: CASE EVENT DATE: 20240405
